FAERS Safety Report 24443085 (Version 2)
Quarter: 2024Q4

REPORT INFORMATION
  Report Type: Report from Study
  Country: KR (occurrence: KR)
  Receive Date: 20241016
  Receipt Date: 20241017
  Transmission Date: 20250115
  Serious: No
  Sender: ROCHE
  Company Number: KR-CHUGAI-2024018851

PATIENT
  Age: 39 Year
  Sex: Male
  Weight: 74.0 kg

DRUGS (12)
  1. HEMLIBRA [Suspect]
     Active Substance: EMICIZUMAB-KXWH
     Indication: Haemophilia A without inhibitors
     Dosage: 3 MILLIGRAM/KILOGRAM, ONCE/WEEK
     Route: 058
     Dates: start: 20230725, end: 20230815
  2. HEMLIBRA [Suspect]
     Active Substance: EMICIZUMAB-KXWH
     Dosage: 30 MILLIGRAM/KILOGRAM, ONCE/2WEEKS
     Route: 058
     Dates: start: 20230822
  3. KOGENATE FS [Concomitant]
     Active Substance: ANTIHEMOPHILIC FACTOR, HUMAN RECOMBINANT
     Indication: Haemophilic arthropathy
     Dosage: 2216 INTERNATIONAL UNIT
     Dates: start: 20221114
  4. KOGENATE FS [Concomitant]
     Active Substance: ANTIHEMOPHILIC FACTOR, HUMAN RECOMBINANT
     Indication: Mouth haemorrhage
     Dosage: 2195 INTERNATIONAL UNIT
     Dates: start: 20230725, end: 20230725
  5. KOGENATE FS [Concomitant]
     Active Substance: ANTIHEMOPHILIC FACTOR, HUMAN RECOMBINANT
     Dosage: 2216 INTERNATIONAL UNIT
     Dates: start: 20231003, end: 20231003
  6. KOGENATE FS [Concomitant]
     Active Substance: ANTIHEMOPHILIC FACTOR, HUMAN RECOMBINANT
     Dosage: 2174 INTERNATIONAL UNIT
     Dates: start: 20231213, end: 20231213
  7. CELEBREX [Concomitant]
     Active Substance: CELECOXIB
     Indication: Haemophilic arthropathy
     Dosage: 200 MILLIGRAM, BID
     Dates: start: 20230906
  8. ARCOXIA [Concomitant]
     Active Substance: ETORICOXIB
     Indication: Haemophilic arthropathy
     Dosage: 30 MILLIGRAM, QD
     Dates: start: 20240221
  9. KYMOXIN [Concomitant]
     Indication: Prophylaxis
     Dosage: 2000 MILLIGRAM, SINGLE
     Dates: start: 20230824, end: 20230824
  10. AUGMENTIN [Concomitant]
     Active Substance: AMOXICILLIN\CLAVULANATE POTASSIUM
     Indication: Gingivitis
     Dosage: 625 MILLIGRAM, BID
     Dates: start: 20230817, end: 20230819
  11. MUCOSTA SR [Concomitant]
     Indication: Gingivitis
     Dosage: 150 MILLIGRAM, BID
     Dates: start: 20230817, end: 20230819
  12. ANYFEN [Concomitant]
     Indication: Gingivitis
     Dosage: 400 MILLIGRAM, BID
     Dates: start: 20230817, end: 20230819

REACTIONS (1)
  - Hypoaesthesia [Recovered/Resolved]

NARRATIVE: CASE EVENT DATE: 20240301
